FAERS Safety Report 10205489 (Version 1)
Quarter: 2014Q2

REPORT INFORMATION
  Report Type: Spontaneous
  Country: AU (occurrence: AU)
  Receive Date: 20140529
  Receipt Date: 20140529
  Transmission Date: 20141212
  Serious: Yes (Life-Threatening, Hospitalization)
  Sender: FDA-Public Use
  Company Number: AU-ACTAVIS-2014-11404

PATIENT
  Age: 41 Year
  Sex: Male

DRUGS (5)
  1. QUETIAPINE [Suspect]
     Indication: INTENTIONAL OVERDOSE
     Dosage: 18 G, SINGLE
     Route: 048
  2. CARBAMAZEPINE [Suspect]
     Indication: INTENTIONAL OVERDOSE
     Dosage: 10 G, SINGLE
     Route: 048
  3. FLUOXETINE (UNKNOWN) [Suspect]
     Indication: INTENTIONAL OVERDOSE
     Dosage: 240 MG, SINGLE
     Route: 048
  4. VALPROIC ACID [Suspect]
     Indication: INTENTIONAL OVERDOSE
     Dosage: 35 G, SINGLE
     Route: 048
  5. OXAZEPAM (UNKNOWN) [Suspect]
     Indication: INTENTIONAL OVERDOSE
     Dosage: 375 MG, SINGLE
     Route: 048

REACTIONS (5)
  - Distributive shock [Recovered/Resolved]
  - Coma [Recovered/Resolved]
  - Body temperature decreased [Recovered/Resolved]
  - Electrocardiogram QT prolonged [Recovered/Resolved]
  - Intentional overdose [Recovered/Resolved]
